FAERS Safety Report 25232767 (Version 2)
Quarter: 2025Q2

REPORT INFORMATION
  Report Type: Spontaneous
  Country: US (occurrence: US)
  Receive Date: 20250424
  Receipt Date: 20250502
  Transmission Date: 20250716
  Serious: Yes (Death, Hospitalization)
  Sender: TEVA
  Company Number: US-TEVA-VS-3324195

PATIENT
  Age: 70 Year
  Sex: Male

DRUGS (4)
  1. LACTULOSE [Suspect]
     Active Substance: LACTULOSE
     Indication: Cirrhosis alcoholic
     Route: 065
  2. PROPOFOL [Suspect]
     Active Substance: PROPOFOL
     Indication: Hyperammonaemic encephalopathy
     Route: 050
  3. RIFAXIMIN [Suspect]
     Active Substance: RIFAXIMIN
     Indication: Antibiotic therapy
     Route: 065
  4. SODIUM CHLORIDE [Suspect]
     Active Substance: SODIUM CHLORIDE
     Indication: Hyperammonaemic encephalopathy
     Route: 065

REACTIONS (2)
  - Drug ineffective [Fatal]
  - Treatment noncompliance [Unknown]
